FAERS Safety Report 22218513 (Version 2)
Quarter: 2023Q2

REPORT INFORMATION
  Report Type: Report from Study
  Country: ES (occurrence: ES)
  Receive Date: 20230417
  Receipt Date: 20230526
  Transmission Date: 20230722
  Serious: Yes (Other)
  Sender: FDA-Public Use
  Company Number: ES-PFIZER INC-PV202300064903

PATIENT
  Age: 78 Year
  Sex: Female

DRUGS (3)
  1. DAPTOMYCIN [Suspect]
     Active Substance: DAPTOMYCIN
     Dosage: UNK
  2. METAMIZOLE [Suspect]
     Active Substance: METAMIZOLE
     Dosage: UNK
  3. CEFEPIME [Suspect]
     Active Substance: CEFEPIME HYDROCHLORIDE
     Dosage: UNK

REACTIONS (1)
  - Rash maculo-papular [Unknown]
